FAERS Safety Report 6701717-6 (Version None)
Quarter: 2010Q2

REPORT INFORMATION
  Report Type: 
  Country: None (occurrence: None)
  Receive Date: 20100429
  Receipt Date: 20100419
  Transmission Date: 20101027
  Serious: Yes (Hospitalization, Other)
  Sender: FDA-Public Use
  Company Number: PHHY2010DE22835

PATIENT
  Sex: Male
  Weight: 100 kg

DRUGS (14)
  1. ALISKIREN ALI+ [Suspect]
     Indication: HYPERTENSION
     Dosage: 150 MG/D
     Route: 048
     Dates: start: 20081107, end: 20090330
  2. ALISKIREN ALI+ [Suspect]
     Dosage: 300 MG PER DAY
     Route: 048
     Dates: start: 20090330
  3. METFORMIN [Concomitant]
     Indication: DIABETES MELLITUS
     Dosage: 2000 MG PER DAY
     Route: 048
     Dates: start: 19900204
  4. ANGIOTENSIN CONVERTING ENZYME BLOCKERS [Concomitant]
     Dosage: UNK
     Dates: end: 20090330
  5. ANTIADRENERGIC AGENTS, CENTRALLY ACTING [Concomitant]
     Dosage: UNK
     Dates: end: 20090422
  6. VOTUM [Concomitant]
     Indication: HYPERTENSION
     Dosage: 20 MG PER DAY
     Route: 048
     Dates: start: 20090422
  7. BISOPROLOL [Concomitant]
     Indication: HYPERTENSION
     Dosage: 1.25 MG PER DAY
     Dates: start: 20061204
  8. XIPAMIDE [Concomitant]
     Indication: HYPERTENSION
     Dosage: 10 MG PER DAY
     Route: 048
     Dates: start: 20081119
  9. HUMALOG [Concomitant]
     Indication: DIABETES MELLITUS
     Dosage: 75 IU/D
     Route: 058
     Dates: start: 20041015
  10. LANTUS [Concomitant]
     Indication: DIABETES MELLITUS
     Dosage: 32 IU PER DAY
     Route: 058
     Dates: start: 20090114, end: 20091007
  11. BETA BLOCKING AGENTS [Concomitant]
     Dosage: UNK
     Dates: end: 20100218
  12. CACIUM ANTAGONIST [Concomitant]
     Dosage: UNK
     Dates: start: 20100218
  13. STATINS [Concomitant]
  14. ANTICOAGULANTS [Concomitant]
     Route: 048

REACTIONS (7)
  - ANGINA PECTORIS [None]
  - ANGIOGRAM [None]
  - BLOOD PRESSURE SYSTOLIC INCREASED [None]
  - BLOOD TRIGLYCERIDES INCREASED [None]
  - ELECTROCARDIOGRAM QRS COMPLEX PROLONGED [None]
  - GLYCOSYLATED HAEMOGLOBIN INCREASED [None]
  - LEFT VENTRICULAR HYPERTROPHY [None]
